FAERS Safety Report 11313561 (Version 1)
Quarter: 2015Q3

REPORT INFORMATION
  Report Type: Spontaneous
  Country: US (occurrence: US)
  Receive Date: 20150727
  Receipt Date: 20150727
  Transmission Date: 20151125
  Serious: No
  Sender: FDA-Public Use
  Company Number: US-ABBVIE-15P-163-1426362-00

PATIENT
  Sex: Female
  Weight: 50.85 kg

DRUGS (5)
  1. AMOXICILLIN. [Concomitant]
     Active Substance: AMOXICILLIN
     Indication: LYME DISEASE
  2. BIAXIN [Suspect]
     Active Substance: CLARITHROMYCIN
     Indication: LYME DISEASE
     Route: 065
     Dates: start: 2002
  3. CLARITHROMYCIN. [Suspect]
     Active Substance: CLARITHROMYCIN
     Indication: LYME DISEASE
     Route: 065
  4. CEFTIN [Concomitant]
     Active Substance: CEFUROXIME AXETIL
     Indication: LYME DISEASE
  5. SYNTHROID [Suspect]
     Active Substance: LEVOTHYROXINE SODIUM
     Indication: AUTOIMMUNE THYROIDITIS
     Route: 065
     Dates: start: 2002

REACTIONS (4)
  - VIIth nerve paralysis [Recovered/Resolved]
  - Fatigue [Not Recovered/Not Resolved]
  - Drug ineffective [Not Recovered/Not Resolved]
  - Hypothyroidism [Unknown]

NARRATIVE: CASE EVENT DATE: 2015
